FAERS Safety Report 4806217-6 (Version None)
Quarter: 2005Q4

REPORT INFORMATION
  Report Type: 
  Country: None (occurrence: None)
  Receive Date: 20051021
  Receipt Date: 20051005
  Transmission Date: 20060501
  Serious: Yes (Hospitalization, Disabling)
  Sender: FDA-Public Use
  Company Number: US-MERCK-0510USA03077

PATIENT
  Age: 41 Year
  Sex: Male
  Weight: 89 kg

DRUGS (9)
  1. VIOXX [Suspect]
     Indication: PAIN
     Route: 048
     Dates: start: 20010401, end: 20021014
  2. NEURONTIN [Concomitant]
     Route: 065
  3. PERCOCET [Concomitant]
     Route: 065
  4. VICODIN [Concomitant]
     Route: 065
  5. DIAZEPAM [Concomitant]
     Route: 065
  6. HYDROCODONE HYDROCHLORIDE [Concomitant]
     Route: 065
  7. ANALGESIC OR ANESTHETIC (UNSPECIFIED) [Concomitant]
     Route: 065
  8. PANLOR SS [Concomitant]
     Route: 065
  9. OXYCODONE [Concomitant]
     Route: 065

REACTIONS (28)
  - ABDOMINAL PAIN UPPER [None]
  - ANEURYSM [None]
  - ARRHYTHMIA [None]
  - BENIGN PROSTATIC HYPERPLASIA [None]
  - BLOOD PRESSURE INCREASED [None]
  - CEREBELLAR ARTERY OCCLUSION [None]
  - CEREBELLAR SYNDROME [None]
  - CEREBROVASCULAR ACCIDENT [None]
  - CHEST PAIN [None]
  - COSTOCHONDRITIS [None]
  - DEPRESSION [None]
  - DIARRHOEA [None]
  - FATIGUE [None]
  - HAEMATURIA [None]
  - HEADACHE [None]
  - HEAT EXHAUSTION [None]
  - HYPERTENSION [None]
  - INTESTINAL HAEMORRHAGE [None]
  - LOSS OF CONSCIOUSNESS [None]
  - MUSCLE SPASMS [None]
  - MYALGIA [None]
  - MYOCARDIAL INFARCTION [None]
  - PELVIC MASS [None]
  - PELVIC NEOPLASM [None]
  - PRESCRIBED OVERDOSE [None]
  - RENAL FAILURE [None]
  - UPPER RESPIRATORY TRACT INFECTION [None]
  - WEIGHT INCREASED [None]
